FAERS Safety Report 8069952-5 (Version None)
Quarter: 2012Q1

REPORT INFORMATION
  Report Type: 
  Country: None (occurrence: None)
  Receive Date: 20120119
  Receipt Date: 20120113
  Transmission Date: 20120608
  Serious: No
  Sender: FDA-Public Use
  Company Number: AE-112-012

PATIENT
  Sex: Male

DRUGS (8)
  1. MIRAPEX [Concomitant]
  2. LIDOCAINE [Suspect]
     Indication: SCIATICA
     Dosage: 3 PATCHES A DAY
     Dates: start: 20110601
  3. METFORMIN HCL [Concomitant]
  4. ZETIA [Concomitant]
  5. GLYBURIDE [Concomitant]
  6. NORVASC [Concomitant]
  7. MULTI-VITAMIN [Concomitant]
  8. CARVEDILOL [Concomitant]

REACTIONS (4)
  - POSTERIOR CAPSULOTOMY [None]
  - DIPLOPIA [None]
  - VISION BLURRED [None]
  - CORNEAL TRANSPLANT [None]
